FAERS Safety Report 16441623 (Version 1)
Quarter: 2019Q2

REPORT INFORMATION
  Report Type: Spontaneous
  Country: JP (occurrence: JP)
  Receive Date: 20190617
  Receipt Date: 20190617
  Transmission Date: 20190711
  Serious: Yes (Other)
  Sender: FDA-Public Use
  Company Number: JP-MYLANLABS-2019M1056625

PATIENT
  Age: 4 Year
  Sex: Female

DRUGS (4)
  1. IMMUNOGLOBULIN                     /00025201/ [Concomitant]
     Active Substance: HUMAN IMMUNOGLOBULIN G
     Indication: BLOOD IMMUNOGLOBULIN G DECREASED
     Dosage: ON DAYS 17, 31, 37, 45, 51, 59, 65, 72, 85 AND THEREAFTER ONCE A WEEK FOR FEW MONTHS
     Route: 065
  2. PREDNISOLONE. [Suspect]
     Active Substance: PREDNISOLONE
     Indication: TAKAYASU^S ARTERITIS
     Route: 065
  3. PREDNISOLONE. [Suspect]
     Active Substance: PREDNISOLONE
     Dosage: REDUCTION OF PREDNISOLONE DOSE
     Route: 065
  4. TOCILIZUMAB. [Suspect]
     Active Substance: TOCILIZUMAB
     Indication: TAKAYASU^S ARTERITIS
     Route: 065

REACTIONS (1)
  - Drug ineffective [Unknown]
